FAERS Safety Report 9563900 (Version 2)
Quarter: 2013Q4

REPORT INFORMATION
  Report Type: Spontaneous
  Country: CA (occurrence: CA)
  Receive Date: 20130927
  Receipt Date: 20131004
  Transmission Date: 20140711
  Serious: Yes (Other)
  Sender: FDA-Public Use
  Company Number: CA-JNJFOC-20130910386

PATIENT
  Sex: Female
  Weight: 75 kg

DRUGS (6)
  1. NICORETTE GUM [Suspect]
     Indication: SMOKING CESSATION THERAPY
     Route: 048
  2. MULTIVITAMINS [Concomitant]
     Indication: PRODUCT USED FOR UNKNOWN INDICATION
     Route: 065
  3. CARBOCAL D [Concomitant]
     Indication: VITAMIN SUPPLEMENTATION
     Route: 065
  4. OMEGA 3 [Concomitant]
     Indication: PRODUCT USED FOR UNKNOWN INDICATION
     Route: 065
  5. ADVAIR [Concomitant]
     Indication: ASTHMA
     Route: 065
  6. CARBOCAL NOS [Concomitant]
     Indication: VITAMIN SUPPLEMENTATION
     Route: 065

REACTIONS (2)
  - Throat tightness [Recovered/Resolved]
  - Trismus [Recovered/Resolved]
